FAERS Safety Report 4704581-X (Version None)
Quarter: 2005Q2

REPORT INFORMATION
  Report Type: 
  Country: None (occurrence: None)
  Receive Date: 20050630
  Receipt Date: 20050620
  Transmission Date: 20051028
  Serious: Yes (Death, Hospitalization)
  Sender: FDA-Public Use
  Company Number: PR-2005-005383

PATIENT
  Age: 47 Year
  Sex: Female
  Weight: 40.8 kg

DRUGS (4)
  1. BETASERON [Suspect]
     Indication: MULTIPLE SCLEROSIS
     Dosage: 8 MIU, EVERY 3D, SUBCUTANEOUS
     Route: 058
     Dates: start: 20030127, end: 20050121
  2. ZOLOFT [Concomitant]
  3. NEURONTIN [Concomitant]
  4. KLONOPIN [Concomitant]

REACTIONS (3)
  - CARDIO-RESPIRATORY ARREST [None]
  - EPILEPSY [None]
  - INCOHERENT [None]
